FAERS Safety Report 20481791 (Version 1)
Quarter: 2022Q1

REPORT INFORMATION
  Report Type: Report from Study
  Country: IN (occurrence: None)
  Receive Date: 20220216
  Receipt Date: 20220216
  Transmission Date: 20220423
  Serious: Yes (Death)
  Sender: FDA-Public Use
  Company Number: IN-Eisai Pharmaceuticals India Pvt. Ltd.-EC-2022-108731

PATIENT
  Age: 73 Year
  Sex: Male

DRUGS (1)
  1. LENVIMA [Suspect]
     Active Substance: LENVATINIB
     Indication: Hepatocellular carcinoma
     Route: 048
     Dates: start: 20220102

REACTIONS (5)
  - Death [Fatal]
  - Loss of consciousness [Unknown]
  - Diarrhoea [Unknown]
  - Mouth ulceration [Unknown]
  - Coating in mouth [Unknown]

NARRATIVE: CASE EVENT DATE: 20220101
